FAERS Safety Report 19583325 (Version 1)
Quarter: 2021Q3

REPORT INFORMATION
  Report Type: Spontaneous
  Country: GT (occurrence: GT)
  Receive Date: 20210720
  Receipt Date: 20210720
  Transmission Date: 20211014
  Serious: Yes (Other)
  Sender: FDA-Public Use
  Company Number: GT-SA-2021SA232858

PATIENT
  Age: 64 Year
  Sex: Female

DRUGS (2)
  1. LANTUS SOLOSTAR [Suspect]
     Active Substance: INSULIN GLARGINE
     Dosage: 10 IU, QD (ONCE DAILY)
     Route: 058
     Dates: start: 20210705
  2. LANTUS SOLOSTAR [Suspect]
     Active Substance: INSULIN GLARGINE
     Indication: DIABETES MELLITUS
     Dosage: 15 IU,QD (ONCE DAILY)
     Route: 058
     Dates: start: 202003, end: 20210616

REACTIONS (9)
  - Illness [Unknown]
  - Condition aggravated [Recovering/Resolving]
  - Dysgeusia [Recovered/Resolved]
  - Neuropathy peripheral [Unknown]
  - Head discomfort [Unknown]
  - Vision blurred [Recovering/Resolving]
  - Vomiting [Unknown]
  - Paraesthesia oral [Recovered/Resolved]
  - Intentional dose omission [Unknown]

NARRATIVE: CASE EVENT DATE: 202105
